FAERS Safety Report 5986416-0 (Version None)
Quarter: 2008Q4

REPORT INFORMATION
  Report Type: 
  Country: None (occurrence: None)
  Receive Date: 20081209
  Receipt Date: 20081201
  Transmission Date: 20090506
  Serious: Yes (Death, Other)
  Sender: FDA-Public Use
  Company Number: ZA-ABBOTT-08P-143-0488813-00

PATIENT
  Sex: Female

DRUGS (4)
  1. KALETRA [Suspect]
     Indication: DRUG EXPOSURE DURING PREGNANCY
     Route: 064
  2. DIDANOSINE [Suspect]
     Indication: DRUG EXPOSURE DURING PREGNANCY
  3. LAMIVUDINE [Suspect]
     Indication: DRUG EXPOSURE DURING PREGNANCY
  4. ZIDOVUDINE [Suspect]
     Indication: DRUG EXPOSURE DURING PREGNANCY

REACTIONS (6)
  - ABDOMINAL DISTENSION [None]
  - DRUG EXPOSURE DURING PREGNANCY [None]
  - MATERNAL DRUGS AFFECTING FOETUS [None]
  - NECROTISING COLITIS [None]
  - PNEUMATOSIS [None]
  - PREMATURE BABY [None]
